FAERS Safety Report 7583022-1 (Version None)
Quarter: 2011Q2

REPORT INFORMATION
  Report Type: 
  Country: None (occurrence: None)
  Receive Date: 20110630
  Receipt Date: 20110627
  Transmission Date: 20111010
  Serious: Yes (Life-Threatening, Hospitalization)
  Sender: FDA-Public Use
  Company Number: FR-BRISTOL-MYERS SQUIBB COMPANY-15614167

PATIENT
  Age: 58 Year
  Sex: Female

DRUGS (10)
  1. LEVOTHYROXINE SODIUM [Concomitant]
  2. CALCIUM CARBONATE [Concomitant]
  3. DUPHALAC [Suspect]
  4. IRBESARTAN [Suspect]
     Route: 048
     Dates: end: 20110220
  5. NEBIVOLOL HCL [Suspect]
  6. TRANSIPEG [Concomitant]
  7. NOVORAPID [Concomitant]
  8. CRESTOR [Suspect]
     Dates: end: 20110220
  9. CORDARONE [Suspect]
  10. NICARDIPINE HCL [Suspect]

REACTIONS (7)
  - HYPERKALAEMIA [None]
  - ABDOMINAL PAIN [None]
  - ANURIA [None]
  - TRANSAMINASES INCREASED [None]
  - DIARRHOEA [None]
  - CONSTIPATION [None]
  - RENAL FAILURE ACUTE [None]
